FAERS Safety Report 10408779 (Version 1)
Quarter: 2014Q3

REPORT INFORMATION
  Report Type: Spontaneous
  Country: US (occurrence: None)
  Receive Date: 20140825
  Receipt Date: 20140825
  Transmission Date: 20150326
  Serious: No
  Sender: FDA-Public Use
  Company Number: None

PATIENT
  Age: 88 Year
  Sex: Female

DRUGS (1)
  1. NIFEDIPINE. [Suspect]
     Active Substance: NIFEDIPINE
     Dosage: 1 QD ORAL
     Route: 048
     Dates: start: 20140415, end: 20140823

REACTIONS (1)
  - Nasopharyngitis [None]

NARRATIVE: CASE EVENT DATE: 20140823
